FAERS Safety Report 6830348-2 (Version None)
Quarter: 2010Q3

REPORT INFORMATION
  Report Type: 
  Country: None (occurrence: None)
  Receive Date: 20100712
  Receipt Date: 20100701
  Transmission Date: 20110219
  Serious: No
  Sender: FDA-Public Use
  Company Number: US-BIOGENIDEC-2010BI017958

PATIENT
  Sex: Female

DRUGS (1)
  1. TYSABRI [Suspect]
     Indication: MULTIPLE SCLEROSIS
     Route: 042
     Dates: start: 20090811

REACTIONS (7)
  - AMNESIA [None]
  - DIZZINESS [None]
  - FATIGUE [None]
  - HOT FLUSH [None]
  - INTERVERTEBRAL DISC DISORDER [None]
  - MULTIPLE SCLEROSIS [None]
  - TREMOR [None]
